FAERS Safety Report 8445797-9 (Version None)
Quarter: 2012Q2

REPORT INFORMATION
  Report Type: 
  Country: None (occurrence: None)
  Receive Date: 20120618
  Receipt Date: 20120615
  Transmission Date: 20120825
  Serious: Yes (Death)
  Sender: FDA-Public Use
  Company Number: FR-PFIZER INC-2012044214

PATIENT
  Age: 68 Year
  Sex: Female

DRUGS (16)
  1. TAZOBACTAM [Concomitant]
     Indication: ANTIBIOTIC THERAPY
     Dosage: UNK
     Dates: start: 20111228, end: 20120104
  2. VALACYCLOVIR HYDROCHLORIDE [Concomitant]
     Dosage: UNK
     Dates: start: 20111228
  3. METOCLOPRAMIDE [Concomitant]
  4. CYTARABINE [Suspect]
     Indication: ACUTE LEUKAEMIA
     Dosage: 352 MG, UNK
     Route: 042
     Dates: start: 20111228, end: 20120103
  5. ZYVOX [Concomitant]
     Dosage: UNK
     Dates: start: 20111230
  6. FASTURTEC [Concomitant]
     Dosage: UNK
     Dates: start: 20111228
  7. IDARUBICIN HCL [Suspect]
     Indication: ACUTE LEUKAEMIA
     Dosage: UNK
     Dates: start: 20111228
  8. CYTARABINE [Suspect]
     Dosage: 40 MG, CYCLIC, 4 CYCLES
     Route: 037
     Dates: start: 20120106, end: 20120113
  9. VANCOMYCIN HYDROCHLORIDE [Concomitant]
     Indication: ANTIBIOTIC THERAPY
     Dosage: UNK
     Dates: start: 20120105
  10. EMEND [Concomitant]
     Dosage: UNK
     Dates: start: 20111229
  11. LEVOFLOXACIN [Concomitant]
     Dosage: UNK
     Dates: start: 20111229
  12. POSACONAZOLE [Concomitant]
  13. AMIODARONE HYDROCHLORIDE [Concomitant]
     Dosage: UNK
     Route: 042
     Dates: start: 20111230
  14. HYDREA [Concomitant]
     Dosage: UNK
     Dates: start: 20111226, end: 20111228
  15. METHOTREXATE [Suspect]
     Dosage: 15 MG, 4 CYCLES
     Route: 037
     Dates: start: 20120106, end: 20120113
  16. ZOFRAN [Concomitant]

REACTIONS (5)
  - RENAL FAILURE ACUTE [None]
  - SEPTIC SHOCK [None]
  - INTESTINAL ISCHAEMIA [None]
  - APLASIA [None]
  - DERMATITIS BULLOUS [None]
